FAERS Safety Report 15065232 (Version 1)
Quarter: 2018Q2

REPORT INFORMATION
  Report Type: Spontaneous
  Country: DE (occurrence: DE)
  Receive Date: 20180626
  Receipt Date: 20180626
  Transmission Date: 20180711
  Serious: Yes (Hospitalization)
  Sender: FDA-Public Use
  Company Number: DE-TEVA-2018-DE-912813

PATIENT
  Age: 24 Year
  Sex: Female

DRUGS (4)
  1. CLOZAPIN [Suspect]
     Active Substance: CLOZAPINE
     Dosage: 1-0.5-1-1
     Route: 065
  2. LEVOTHYROXINE SODIUM. [Concomitant]
     Active Substance: LEVOTHYROXINE SODIUM
     Dosage: 1-0-0-0
     Route: 065
  3. LORAZEPAM. [Concomitant]
     Active Substance: LORAZEPAM
     Dosage: NK MG, NEED
     Route: 065
  4. ZEBETA [Suspect]
     Active Substance: BISOPROLOL FUMARATE
     Dosage: 1-0-0-0
     Route: 065

REACTIONS (1)
  - Faecaloma [Unknown]

NARRATIVE: CASE EVENT DATE: 20170510
